FAERS Safety Report 19477644 (Version 1)
Quarter: 2021Q2

REPORT INFORMATION
  Report Type: Spontaneous
  Country: US (occurrence: US)
  Receive Date: 20210630
  Receipt Date: 20210630
  Transmission Date: 20210717
  Serious: Yes (Other)
  Sender: FDA-Public Use
  Company Number: US-PFIZER INC-2020204534

PATIENT
  Age: 64 Year
  Sex: Male

DRUGS (3)
  1. SOMAVERT [Suspect]
     Active Substance: PEGVISOMANT
     Dosage: 15 MG, 1X/DAY
     Route: 058
     Dates: start: 20191212, end: 202004
  2. SOMAVERT [Suspect]
     Active Substance: PEGVISOMANT
     Dosage: 15 MG DAILY
     Route: 058
     Dates: start: 20210610
  3. SOMAVERT [Suspect]
     Active Substance: PEGVISOMANT
     Indication: ACROMEGALY
     Dosage: 10 MG, 1X/DAY
     Dates: start: 20190413

REACTIONS (6)
  - Osteomyelitis [Unknown]
  - Fatigue [Unknown]
  - Arthralgia [Unknown]
  - Jaw disorder [Unknown]
  - Cardiomegaly [Unknown]
  - Pain in jaw [Unknown]
